FAERS Safety Report 10050699 (Version 1)
Quarter: 2014Q2

REPORT INFORMATION
  Report Type: Spontaneous
  Country: US (occurrence: US)
  Receive Date: 20140401
  Receipt Date: 20140401
  Transmission Date: 20141212
  Serious: No
  Sender: FDA-Public Use
  Company Number: US-ASTRAZENECA-2013SE65958

PATIENT
  Age: 78 Year
  Sex: Female
  Weight: 69.4 kg

DRUGS (5)
  1. NEXIUM [Suspect]
     Route: 048
     Dates: start: 2012
  2. LISINOPRIL HCT [Suspect]
     Dosage: 10/12.5 UNK
     Route: 048
     Dates: start: 2012
  3. SYNTHROID [Concomitant]
  4. GABAPENTIN [Concomitant]
     Indication: MYALGIA
  5. CYCLOEBENZAPIME [Concomitant]
     Indication: MUSCLE RELAXANT THERAPY

REACTIONS (2)
  - Dysphonia [Unknown]
  - Throat irritation [Unknown]
